FAERS Safety Report 6689498 (Version 2)
Quarter: 2014Q4

REPORT INFORMATION
  Report Type: Spontaneous
  Country: US (occurrence: None)
  Receive Date: 20080201
  Receipt Date: 20141002
  Transmission Date: 20150529
  Serious: Yes (Other)
  Sender: FDA-Public Use
  Company Number: 521097

PATIENT
  Age: 44 Year
  Sex: Male

DRUGS (13)
  1. PEGYLATED INTERFERON ALPHA NOS [Suspect]
     Active Substance: PEGINTERFERON ALFA-2A OR PEGINTERFERON ALFA-2B
     Indication: HEPATITIS C
  2. METFORMIN HYDROCHLORIDE. [Concomitant]
     Active Substance: METFORMIN HYDROCHLORIDE
  3. VALSARTAN. [Concomitant]
     Active Substance: VALSARTAN
  4. FENOFIBRATE. [Concomitant]
     Active Substance: FENOFIBRATE
  5. INSULIN [Concomitant]
     Active Substance: INSULIN NOS
  6. TEMAZEPAM. [Concomitant]
     Active Substance: TEMAZEPAM
  7. GLIMEPIRIDE (GLIMEPRIDE) [Concomitant]
  8. ROSIGLITAZONE [Concomitant]
     Active Substance: ROSIGLITAZONE
  9. HYDROXYZINE [Concomitant]
     Active Substance: HYDROXYZINE\HYDROXYZINE HYDROCHLORIDE
  10. TRIHEXYPHENIDYL (TRIHEXYPHENIDYL HYDROCHLORIDE) [Concomitant]
  11. RISPERIDONE (RISPERIDONE) [Concomitant]
     Active Substance: RISPERIDONE
  12. RIBAVIRIN. [Suspect]
     Active Substance: RIBAVIRIN
     Indication: HEPATITIS C
  13. CLONAZEPAM. [Concomitant]
     Active Substance: CLONAZEPAM

REACTIONS (3)
  - Retinal exudates [None]
  - Mental disorder [None]
  - Retinopathy [None]
